FAERS Safety Report 17608212 (Version 1)
Quarter: 2020Q1

REPORT INFORMATION
  Report Type: Spontaneous
  Country: US (occurrence: US)
  Receive Date: 20200331
  Receipt Date: 20200331
  Transmission Date: 20200409
  Serious: Yes (Hospitalization, Other)
  Sender: FDA-Public Use
  Company Number: US-AGIOS-2003US01783

PATIENT

DRUGS (1)
  1. TIBSOVO [Suspect]
     Active Substance: IVOSIDENIB
     Indication: ANAPLASTIC ASTROCYTOMA
     Dosage: 250MG, 2 TABLETS (500MG) DAILY

REACTIONS (6)
  - Dysphagia [Unknown]
  - Seizure [Unknown]
  - Adverse event [Unknown]
  - Fall [Unknown]
  - Loss of consciousness [Unknown]
  - Off label use [Unknown]

NARRATIVE: CASE EVENT DATE: 20200305
